FAERS Safety Report 5486321-2 (Version None)
Quarter: 2007Q4

REPORT INFORMATION
  Report Type: 
  Country: None (occurrence: None)
  Receive Date: 20071016
  Receipt Date: 20071012
  Transmission Date: 20080405
  Serious: Yes (Life-Threatening, Hospitalization)
  Sender: FDA-Public Use
  Company Number: PHBS2007JP14403

PATIENT
  Age: 59 Year
  Sex: Female

DRUGS (15)
  1. LANSOPRAZOLE [Suspect]
     Indication: GASTRIC ULCER
     Dosage: 60 MG/DAY
     Dates: start: 20070723, end: 20070803
  2. LANSOPRAZOLE [Suspect]
     Dosage: 30 MG/DAY
     Route: 048
     Dates: start: 20070804, end: 20070821
  3. OLMETEC [Suspect]
     Dosage: UNK, UNK
     Route: 048
     Dates: start: 20070808, end: 20070821
  4. APRESOLIN [Suspect]
     Indication: HYPERTENSION
     Dosage: 50 MG, BID
     Route: 048
     Dates: start: 20070730, end: 20070808
  5. VOLTAREN [Suspect]
     Indication: ANTIPYRESIS
     Dosage: 25 MG/DAY
     Route: 054
     Dates: start: 20070723, end: 20070805
  6. LEVOFLOXACIN [Suspect]
     Indication: INFECTION
     Dosage: 400 MG/DAY
     Route: 048
     Dates: start: 20070808, end: 20070812
  7. OMEGACIN [Suspect]
     Indication: INTERSTITIAL LUNG DISEASE
     Dosage: 600 MG/DAY
     Dates: start: 20070723, end: 20070804
  8. DORMICUM [Suspect]
     Indication: SEDATION
     Dosage: 10 UG/DAY
     Route: 042
     Dates: start: 20070723, end: 20070728
  9. PENTAZOCINE LACTATE [Suspect]
     Indication: SEDATION
     Dosage: 30 UG/DAY
     Route: 042
     Dates: start: 20070723, end: 20070728
  10. PRODIF [Suspect]
     Dosage: 800 MG/DAY
     Route: 042
     Dates: start: 20070723, end: 20070804
  11. PRODIF [Suspect]
     Dosage: 400 MG/DAY
     Route: 042
     Dates: start: 20070723, end: 20070804
  12. BAKTAR [Suspect]
     Indication: INTERSTITIAL LUNG DISEASE
     Dosage: 2  G/DAY
     Route: 048
     Dates: start: 20070724, end: 20070801
  13. NORVASC [Suspect]
     Indication: HYPERTENSION
     Dosage: 5 MG/DAY
     Route: 048
     Dates: start: 20070808, end: 20070821
  14. POLYMYXIN B [Concomitant]
  15. ELASPOL [Concomitant]

REACTIONS (17)
  - ALANINE AMINOTRANSFERASE INCREASED [None]
  - BLISTER [None]
  - BLOOD ALBUMIN DECREASED [None]
  - BLOOD CHOLINESTERASE DECREASED [None]
  - BLOOD LACTATE DEHYDROGENASE INCREASED [None]
  - C-REACTIVE PROTEIN INCREASED [None]
  - GAMMA-GLUTAMYLTRANSFERASE INCREASED [None]
  - HAEMATOCRIT DECREASED [None]
  - HAEMOGLOBIN DECREASED [None]
  - LYMPHOCYTE COUNT DECREASED [None]
  - NECROSIS [None]
  - PROTEIN TOTAL DECREASED [None]
  - RASH ERYTHEMATOUS [None]
  - RED BLOOD CELL COUNT DECREASED [None]
  - SKIN EROSION [None]
  - SKIN EXFOLIATION [None]
  - TOXIC EPIDERMAL NECROLYSIS [None]
